FAERS Safety Report 9315085 (Version 1)
Quarter: 2013Q2

REPORT INFORMATION
  Report Type: Spontaneous
  Country: US (occurrence: US)
  Receive Date: 20130529
  Receipt Date: 20130529
  Transmission Date: 20140414
  Serious: Yes (Other)
  Sender: FDA-Public Use
  Company Number: US-ALEXION PHARMACEUTICALS INC.-A201300749

PATIENT
  Sex: Female

DRUGS (10)
  1. SOLIRIS 300MG [Suspect]
     Indication: PAROXYSMAL NOCTURNAL HAEMOGLOBINURIA
     Dosage: 900 MG, Q2W
     Route: 042
  2. SOLIRIS 300MG [Suspect]
     Dosage: 1200 MG, Q2W
     Route: 042
     Dates: start: 20130402
  3. AMBIEN [Concomitant]
     Indication: SLEEP DISORDER
     Dosage: 10 MG, PRN QHS
  4. ATIVAN [Concomitant]
     Dosage: 1 MG, TID PRN
     Route: 048
  5. BENADRYL [Concomitant]
     Dosage: 50 MG, PRN Q4-6H
     Route: 048
  6. LMX 4 [Concomitant]
     Dosage: 4%, THIN COATING TO PORT-A-CATH SITE BEFORE ACCESS
  7. PROZAC [Concomitant]
     Dosage: 20 MG, QD QAM
     Route: 048
  8. TYLENOL EXTRA STRENGTH [Concomitant]
     Dosage: 650 MG, QD
     Route: 048
  9. ALBUTEROL HFA [Concomitant]
     Dosage: 90 MCG PRN, 2 PUFFS Q4-6H
  10. MEDROXYPROGESTERONE ACETATE [Concomitant]
     Dosage: 150 MG Q3M
     Route: 030

REACTIONS (1)
  - Haemolysis [Not Recovered/Not Resolved]
